FAERS Safety Report 19972412 (Version 2)
Quarter: 2023Q2

REPORT INFORMATION
  Report Type: Spontaneous
  Country: US (occurrence: US)
  Receive Date: 20211020
  Receipt Date: 20230628
  Transmission Date: 20230722
  Serious: No
  Sender: FDA-Public Use
  Company Number: US-SA-SAC20211016000191

PATIENT
  Age: 56 Year
  Sex: Male

DRUGS (2)
  1. FABRAZYME [Suspect]
     Active Substance: AGALSIDASE BETA
     Indication: Fabry^s disease
     Dosage: 125 MG, QOW
     Route: 041
     Dates: start: 2015
  2. FABRAZYME [Suspect]
     Active Substance: AGALSIDASE BETA
     Dosage: 120 MG, QOW
     Route: 041
     Dates: start: 201506

REACTIONS (1)
  - No adverse event [Unknown]

NARRATIVE: CASE EVENT DATE: 20230602
